FAERS Safety Report 25762022 (Version 1)
Quarter: 2025Q3

REPORT INFORMATION
  Report Type: Spontaneous
  Country: EU (occurrence: EU)
  Receive Date: 20250904
  Receipt Date: 20250904
  Transmission Date: 20251020
  Serious: Yes (Other)
  Sender: VERTEX
  Company Number: None

PATIENT
  Age: 23 Year
  Sex: Female
  Weight: 66 kg

DRUGS (2)
  1. ELEXACAFTOR\IVACAFTOR\TEZACAFTOR [Suspect]
     Active Substance: ELEXACAFTOR\IVACAFTOR\TEZACAFTOR
     Indication: Cystic fibrosis
     Dosage: (75MG IVA/ 50MG TEZA/ 100MG ELEXA) 2 TABS
     Route: 048
     Dates: start: 20231004, end: 20250307
  2. KALYDECO [Suspect]
     Active Substance: IVACAFTOR
     Indication: Cystic fibrosis
     Dosage: 1 DOSAGE FORM
     Route: 048
     Dates: start: 20230922, end: 20250307

REACTIONS (1)
  - Anxiety disorder [Unknown]

NARRATIVE: CASE EVENT DATE: 20230101
